FAERS Safety Report 9928503 (Version 1)
Quarter: 2014Q1

REPORT INFORMATION
  Report Type: Spontaneous
  Country: US (occurrence: None)
  Receive Date: 20140226
  Receipt Date: 20140226
  Transmission Date: 20141002
  Serious: Yes (Hospitalization)
  Sender: FDA-Public Use
  Company Number: None

PATIENT
  Age: 93 Year
  Sex: Male
  Weight: 65.4 kg

DRUGS (2)
  1. WARFARIN [Suspect]
     Indication: ATRIAL FIBRILLATION
     Dosage: 2.5 OR 5 MG UD PO
     Route: 048
     Dates: start: 20130828, end: 20131213
  2. WARFARIN [Suspect]
     Indication: CEREBROVASCULAR ACCIDENT
     Dosage: 2.5 OR 5 MG UD PO
     Route: 048
     Dates: start: 20130828, end: 20131213

REACTIONS (2)
  - Rash [None]
  - Skin exfoliation [None]
